FAERS Safety Report 8710478 (Version 2)
Quarter: 2012Q4

REPORT INFORMATION
  Report Type: 
  Country: US (occurrence: US)
  Receive Date: 20120807
  Receipt Date: 20120830
  Transmission Date: 20130627
  Serious: Yes (Hospitalization)
  Sender: FDA-Public Use
  Company Number: US-ELI_LILLY_AND_COMPANY-US201208000115

PATIENT
  Age: 73 None
  Sex: Female
  Weight: 50.34 kg

DRUGS (8)
  1. FORTEO [Suspect]
     Indication: OSTEOPOROSIS
     Dosage: 20 ug, qd
     Route: 058
     Dates: start: 2007, end: 2008
  2. FORTEO [Suspect]
     Dosage: 20 ug, qd
     Route: 058
     Dates: start: 20120723
  3. CARDIZEM                           /00489701/ [Concomitant]
  4. LEVOTHYROXINE [Concomitant]
     Indication: THYROID DISORDER
  5. OMEPRAZOLE [Concomitant]
  6. PREMARIN [Concomitant]
  7. POTASSIUM CITRATE [Concomitant]
     Dosage: 10 mg, qd
  8. VITAMINS [Concomitant]

REACTIONS (6)
  - Urostomy complication [Recovered/Resolved]
  - Bone density decreased [Unknown]
  - Nausea [Unknown]
  - Headache [Unknown]
  - Nephrolithiasis [Unknown]
  - Hypocitraturia [Unknown]
